FAERS Safety Report 15319374 (Version 2)
Quarter: 2019Q3

REPORT INFORMATION
  Report Type: Report from Study
  Country: CA (occurrence: CA)
  Receive Date: 20180827
  Receipt Date: 20190813
  Transmission Date: 20191004
  Serious: Yes (Hospitalization, Other)
  Sender: FDA-Public Use
  Company Number: CA-BRISTOL-MYERS SQUIBB COMPANY-BMS-2018-045586

PATIENT
  Sex: Female

DRUGS (1)
  1. ABATACEPT [Suspect]
     Active Substance: ABATACEPT
     Indication: RHEUMATOID ARTHRITIS
     Dosage: 1000 MG, QMO (1000 MG, 4 VIALS, INFUSION)
     Route: 050
     Dates: start: 20111216

REACTIONS (6)
  - Lung infection [Unknown]
  - Tongue injury [Unknown]
  - Swollen tongue [Unknown]
  - Dental caries [Recovering/Resolving]
  - Ludwig angina [Unknown]
  - Hospitalisation [Unknown]
